FAERS Safety Report 20994068 (Version 1)
Quarter: 2022Q2

REPORT INFORMATION
  Report Type: Spontaneous
  Country: PT (occurrence: PT)
  Receive Date: 20220622
  Receipt Date: 20220622
  Transmission Date: 20220721
  Serious: Yes (Disabling)
  Sender: FDA-Public Use
  Company Number: None

PATIENT
  Age: 69 Year
  Sex: Female
  Weight: 63 kg

DRUGS (11)
  1. GABAPENTIN [Suspect]
     Active Substance: GABAPENTIN
     Indication: Paraesthesia
     Dosage: 100 MG, 12/12H INCREASING TO 300 MG, 12/12H AFTER 10 DAYS, ORAL ROUTE
     Route: 048
     Dates: start: 20220310, end: 20220401
  2. NEUROBION [Concomitant]
     Active Substance: CYANOCOBALAMIN\PYRIDOXINE\THIAMINE
     Dosage: UNK UNK, MONTHLY (INJECTABLE/MONTHLY)
  3. FERRO TARDYFERON [Concomitant]
     Dosage: 247.25 MILLIGRAM, QD (1 TABLET/DAY BREAKFAST)
     Route: 048
  4. LORAZEPAM [Concomitant]
     Active Substance: LORAZEPAM
     Dosage: 2.5 MILLIGRAM, PM (2.5 MG 1 TABLET/IN THE EVENING)
     Route: 048
  5. TRAZODONE HYDROCHLORIDE [Concomitant]
     Active Substance: TRAZODONE HYDROCHLORIDE
     Dosage: 150 MILLIGRAM, QD (150 MG/DAY, AT BEDTIME)
     Route: 048
  6. PANTOPRAZOLE SODIUM [Concomitant]
     Active Substance: PANTOPRAZOLE SODIUM
     Dosage: 20 MILLILITER, QD (1 X DAY FASTING)
     Route: 048
  7. ADALIMUMAB [Concomitant]
     Active Substance: ADALIMUMAB
     Dosage: 40 MILLIGRAM, BIMONTHLY (EVERY 15 DAYS)
     Route: 058
  8. ESCITALOPRAM [Concomitant]
     Active Substance: ESCITALOPRAM OXALATE
     Dosage: 10 MILLIGRAM, QD (1 TABLET AT BREAKFAST)
     Route: 048
  9. ESCITALOPRAM [Concomitant]
     Active Substance: ESCITALOPRAM OXALATE
     Dosage: 10 MILLIGRAM, QD (1 TABLET AT LUNCH)
  10. URSODIOL [Concomitant]
     Active Substance: URSODIOL
     Dosage: 1 DOSAGE FORM, AM (1 TABLET/DAY, BREAKFAST) (250/ 500 MG)
     Route: 048
  11. CALCIUM CARBONATE\CHOLECALCIFEROL [Concomitant]
     Active Substance: CALCIUM CARBONATE\CHOLECALCIFEROL
     Dosage: 1 DOSAGE FORM, AM (1 TABLET BREAKFAST) (1500 MG + 400 I.U)

REACTIONS (5)
  - Balance disorder [Not Recovered/Not Resolved]
  - Coordination abnormal [Not Recovered/Not Resolved]
  - Dizziness [Recovered/Resolved]
  - Gait disturbance [Not Recovered/Not Resolved]
  - Drug ineffective [Unknown]

NARRATIVE: CASE EVENT DATE: 20220301
